FAERS Safety Report 25132062 (Version 1)
Quarter: 2025Q1

REPORT INFORMATION
  Report Type: Report from Study
  Country: US (occurrence: US)
  Receive Date: 20250328
  Receipt Date: 20250328
  Transmission Date: 20250409
  Serious: Yes (Other)
  Sender: NOVARTIS
  Company Number: US-002147023-NVSC2025US049812

PATIENT
  Sex: Male

DRUGS (1)
  1. KESIMPTA [Suspect]
     Active Substance: OFATUMUMAB
     Indication: Product used for unknown indication
     Route: 065

REACTIONS (9)
  - Blindness unilateral [Unknown]
  - Feeling abnormal [Unknown]
  - Myalgia [Unknown]
  - Pain in extremity [Unknown]
  - Muscle strain [Unknown]
  - Fatigue [Unknown]
  - Dizziness [Unknown]
  - Central nervous system lesion [Unknown]
  - Somnolence [Unknown]
